FAERS Safety Report 7771954-0 (Version None)
Quarter: 2011Q3

REPORT INFORMATION
  Report Type: 
  Country: None (occurrence: None)
  Receive Date: 20110922
  Receipt Date: 20100115
  Transmission Date: 20111222
  Serious: No
  Sender: FDA-Public Use
  Company Number: US-ASTRAZENECA-2009SE20953

PATIENT
  Age: 40 Year
  Sex: Female
  Weight: 87.5 kg

DRUGS (7)
  1. SEROQUEL [Suspect]
     Route: 048
     Dates: start: 20070116, end: 20070809
  2. THORAZINE [Concomitant]
  3. GEODON [Concomitant]
     Dates: start: 20040101
  4. ZYPREXA/SYMBAX [Concomitant]
     Dates: start: 20070101
  5. ABILIFY [Concomitant]
  6. SEROQUEL [Suspect]
     Indication: MENTAL DISORDER
     Route: 048
     Dates: start: 20040101, end: 20070101
  7. RISPERDAL [Concomitant]
     Dates: start: 20070101

REACTIONS (5)
  - GASTROOESOPHAGEAL REFLUX DISEASE [None]
  - GASTROINTESTINAL DISORDER [None]
  - OBESITY [None]
  - DIABETES MELLITUS [None]
  - TYPE 2 DIABETES MELLITUS [None]
